FAERS Safety Report 16720549 (Version 1)
Quarter: 2019Q4

REPORT INFORMATION
  Report Type: Spontaneous
  Country: US (occurrence: US)
  Receive Date: 20190819
  Receipt Date: 20190819
  Transmission Date: 20200122
  Serious: Yes (Other)
  Sender: FDA-Public Use
  Company Number: None

PATIENT
  Age: 24 Year
  Sex: Female
  Weight: 69.75 kg

DRUGS (2)
  1. GAMMAGARD [Suspect]
     Active Substance: HUMAN IMMUNOGLOBULIN G
     Indication: PRODUCT USED FOR UNKNOWN INDICATION
     Dosage: ?          OTHER FREQUENCY:X2 DAYS/MONTH;?
     Route: 042
     Dates: start: 20190813, end: 20190815
  2. GAMMAGARD [Suspect]
     Active Substance: HUMAN IMMUNOGLOBULIN G
     Indication: PRODUCT USED FOR UNKNOWN INDICATION
     Dosage: ?          OTHER FREQUENCY:X2 DAYS/MONTH;?
     Route: 042
     Dates: start: 20190813, end: 20190815

REACTIONS (9)
  - Vascular access complication [None]
  - Intentional product use issue [None]
  - Malaise [None]
  - Vomiting [None]
  - Diarrhoea [None]
  - Nausea [None]
  - Inappropriate schedule of product administration [None]
  - Product dose omission [None]
  - Headache [None]

NARRATIVE: CASE EVENT DATE: 20190817
